FAERS Safety Report 7302063-2 (Version None)
Quarter: 2011Q1

REPORT INFORMATION
  Report Type: 
  Country: None (occurrence: None)
  Receive Date: 20110218
  Receipt Date: 20110215
  Transmission Date: 20110831
  Serious: Yes (Other)
  Sender: FDA-Public Use
  Company Number: CA-ABBOTT-11P-028-0703522-00

PATIENT
  Sex: Male
  Weight: 98 kg

DRUGS (2)
  1. MAVIK [Suspect]
     Indication: ESSENTIAL HYPERTENSION
     Dosage: 1.0 MG
     Dates: start: 20100728
  2. MONOCOR [Concomitant]
     Indication: PRODUCT USED FOR UNKNOWN INDICATION

REACTIONS (2)
  - ARTERIOSCLEROSIS CORONARY ARTERY [None]
  - ANGINA PECTORIS [None]
